FAERS Safety Report 9394660 (Version 4)
Quarter: 2014Q2

REPORT INFORMATION
  Report Type: Spontaneous
  Country: US (occurrence: US)
  Receive Date: 20130711
  Receipt Date: 20140625
  Transmission Date: 20141212
  Serious: Yes (Hospitalization)
  Sender: FDA-Public Use
  Company Number: US-BAYER-2013-083291

PATIENT
  Age: 25 Year
  Sex: Female
  Weight: 108.84 kg

DRUGS (8)
  1. MIRENA [Suspect]
     Indication: CONTRACEPTION
     Dosage: 20 MCG/24HR, CONT
     Route: 015
     Dates: start: 200711, end: 20120716
  2. GLUCOPHAGE [Concomitant]
     Dosage: 500 MG, BID
     Dates: start: 2005, end: 2012
  3. NORVASC [Concomitant]
     Dosage: 10 MG, QD
     Route: 048
  4. METOPROLOL TARTRATE [Concomitant]
     Dosage: 100 MG, BID
     Route: 048
  5. METFORMIN [Concomitant]
     Dosage: 1000 MG, BID
     Route: 048
  6. GLIPIZIDE [Concomitant]
     Dosage: 5 MG, BID
     Route: 048
  7. IBUPROFEN [Concomitant]
     Dosage: PRN
  8. TYLENOL [DIPHENHYDRAMINE HYDROCHLORIDE,PARACETAMOL] [Concomitant]
     Dosage: PRN

REACTIONS (9)
  - Uterine perforation [None]
  - Injury [None]
  - Discomfort [None]
  - Dyspareunia [None]
  - Abdominal pain lower [None]
  - Pelvic pain [None]
  - Anxiety [None]
  - Device issue [None]
  - Procedural pain [None]
